FAERS Safety Report 23653766 (Version 1)
Quarter: 2024Q1

REPORT INFORMATION
  Report Type: Other
  Country: GB (occurrence: GB)
  Receive Date: 20240320
  Receipt Date: 20240320
  Transmission Date: 20240409
  Serious: Yes (Other)
  Sender: FDA-Public Use
  Company Number: GB-GLENMARK PHARMACEUTICALS-2024GMK089434

PATIENT

DRUGS (5)
  1. EZETIMIBE [Suspect]
     Active Substance: EZETIMIBE
     Indication: Product used for unknown indication
     Dosage: 30 MILLIGRAM
     Route: 065
  2. MIRABEGRON [Concomitant]
     Active Substance: MIRABEGRON
     Indication: Micturition urgency
     Dosage: 1 DOSAGE FORM, OD (TO REDUCE BLADDER URGE)
     Route: 065
     Dates: start: 20210616
  3. SILDENAFIL [Concomitant]
     Active Substance: SILDENAFIL
     Indication: Product used for unknown indication
     Dosage: 1 DOSAGE FORM, TO BE TAKEN AS DIRECTED
     Route: 065
     Dates: start: 20200227
  4. METFORMIN HYDROCHLORIDE [Concomitant]
     Active Substance: METFORMIN HYDROCHLORIDE
     Indication: Product used for unknown indication
     Dosage: 2 DOSAGE FORM, BID, WITH MEALS (METFORMIN T.
     Route: 065
     Dates: start: 20220407
  5. ZOPICLONE [Concomitant]
     Active Substance: ZOPICLONE
     Indication: Product used for unknown indication
     Dosage: 1 DOSAGE FORM, PRN (TAKE ONE TABLET AT NIGHT WHEN REQUIRED. DO NOT )
     Route: 065
     Dates: start: 20231213, end: 20240110

REACTIONS (2)
  - Muscular weakness [Recovered/Resolved]
  - Asthenia [Unknown]
